FAERS Safety Report 11604587 (Version 4)
Quarter: 2016Q2

REPORT INFORMATION
  Report Type: Spontaneous
  Country: US (occurrence: US)
  Receive Date: 20151007
  Receipt Date: 20160518
  Transmission Date: 20160815
  Serious: Yes (Other)
  Sender: FDA-Public Use
  Company Number: ADR-2015-01466

PATIENT
  Age: 53 Year
  Sex: Female

DRUGS (15)
  1. CLONIDINE. [Suspect]
     Active Substance: CLONIDINE
     Dosage: 65.56 MCG/DAY
     Route: 037
     Dates: start: 20151028
  2. BACLOFEN. [Suspect]
     Active Substance: BACLOFEN
     Route: 037
  3. HYDROMORPHONE [Suspect]
     Active Substance: HYDROMORPHONE
     Dosage: 1.5 MG/DAY
     Route: 037
  4. BACLOFEN. [Suspect]
     Active Substance: BACLOFEN
     Dosage: 32.16 MCG/DAY
     Route: 037
  5. MARCAINE [Suspect]
     Active Substance: BUPIVACAINE HYDROCHLORIDE
     Dosage: 0.72 MG/DAY
     Route: 037
  6. DILAUDID [Suspect]
     Active Substance: HYDROMORPHONE HYDROCHLORIDE
     Dosage: 5.4 MG/DAY
     Route: 037
  7. DILAUDID [Suspect]
     Active Substance: HYDROMORPHONE HYDROCHLORIDE
     Dosage: 5.409 MG/DAY
     Route: 037
     Dates: start: 20151028
  8. CLONIDINE. [Suspect]
     Active Substance: CLONIDINE
     Dosage: 65.4 MCG/DAY
     Route: 037
  9. MARCAINE [Suspect]
     Active Substance: BUPIVACAINE HYDROCHLORIDE
     Dosage: 2.1637 MG/DAY
     Route: 037
     Dates: start: 20151028
  10. COMPOUNDED BACLOFEN [Suspect]
     Active Substance: BACLOFEN
     Dosage: 109.5 MCG/DAY
     Route: 037
  11. MARCAINE [Suspect]
     Active Substance: BUPIVACAINE HYDROCHLORIDE
     Dosage: 2.16 MG/DAY
     Route: 037
  12. HYDROMORPHONE [Suspect]
     Active Substance: HYDROMORPHONE
     Dosage: 1.598 MG/DAY
     Route: 037
  13. CLONIDINE. [Suspect]
     Active Substance: CLONIDINE
     Dosage: 19.2 MCG/DAY
     Route: 037
  14. BACLOFEN. [Suspect]
     Active Substance: BACLOFEN
     Dosage: 109.70 MCG/DAY
     Route: 037
     Dates: start: 20151028
  15. CLONIDINE. [Suspect]
     Active Substance: CLONIDINE
     Route: 037

REACTIONS (4)
  - Somnolence [Unknown]
  - Drug administration error [Unknown]
  - Drug withdrawal syndrome [Unknown]
  - Device infusion issue [None]

NARRATIVE: CASE EVENT DATE: 20150727
